FAERS Safety Report 7679925-X (Version None)
Quarter: 2011Q3

REPORT INFORMATION
  Report Type: 
  Country: None (occurrence: None)
  Receive Date: 20110812
  Receipt Date: 20110801
  Transmission Date: 20111222
  Serious: Yes (Other)
  Sender: FDA-Public Use
  Company Number: US-PFIZER INC-2011176046

PATIENT
  Sex: Female

DRUGS (3)
  1. ABILIFY [Concomitant]
     Dosage: UNK
  2. PRISTIQ [Suspect]
     Dosage: 50 MG, EVERY OTHER DAY
  3. PRISTIQ [Suspect]
     Dosage: UNK

REACTIONS (1)
  - DRUG DEPENDENCE [None]
